FAERS Safety Report 8118588-6 (Version None)
Quarter: 2012Q1

REPORT INFORMATION
  Report Type: 
  Country: None (occurrence: None)
  Receive Date: 20120202
  Receipt Date: 20120123
  Transmission Date: 20120608
  Serious: Yes (Other)
  Sender: FDA-Public Use
  Company Number: 11000027547

PATIENT
  Age: 84 Year
  Sex: Female
  Weight: 78 kg

DRUGS (5)
  1. ROFLUMILAST (ROFLUMILAST) (TABLETS) [Suspect]
     Indication: CHRONIC OBSTRUCTIVE PULMONARY DISEASE
     Dosage: 500 MCG (500 MCG,1 IN 1 D),ORAL
     Route: 048
     Dates: start: 20110224, end: 20110301
  2. KARVEA (IRBESARTAN) (IRBESARTAN) [Concomitant]
  3. SPIRIVA (TIOTROPIUM BROMIDE) (TIOTROPIUM BROMIDE) [Concomitant]
  4. AMITRIPTYLIN (AMITRIPTYLINE HYDROCHLORIDE) (AMITRIPTYLINE HYDROCHLORID [Concomitant]
  5. ATMADISC (SERETIDE) (SERETIDE) [Concomitant]

REACTIONS (1)
  - GENERALISED OEDEMA [None]
